FAERS Safety Report 17115858 (Version 2)
Quarter: 2020Q3

REPORT INFORMATION
  Report Type: Spontaneous
  Country: US (occurrence: US)
  Receive Date: 20191205
  Receipt Date: 20200828
  Transmission Date: 20201102
  Serious: Yes (Death, Hospitalization, Other)
  Sender: FDA-Public Use
  Company Number: US-SA-2019SA335967

PATIENT

DRUGS (2)
  1. AUBAGIO [Suspect]
     Active Substance: TERIFLUNOMIDE
     Dosage: 14 MG, QD
     Route: 048
     Dates: start: 201908
  2. AUBAGIO [Suspect]
     Active Substance: TERIFLUNOMIDE
     Indication: MULTIPLE SCLEROSIS
     Dosage: 14 MG, QD
     Route: 048
     Dates: start: 201603

REACTIONS (5)
  - Pericardial effusion [Unknown]
  - Dysphagia [Unknown]
  - Pleural effusion [Unknown]
  - Cardiac failure congestive [Fatal]
  - Gout [Unknown]

NARRATIVE: CASE EVENT DATE: 201911
